FAERS Safety Report 7487635-7 (Version None)
Quarter: 2011Q2

REPORT INFORMATION
  Report Type: 
  Country: None (occurrence: None)
  Receive Date: 20110518
  Receipt Date: 20090316
  Transmission Date: 20111010
  Serious: Yes (Other)
  Sender: FDA-Public Use
  Company Number: US-BAYER-200915590NA

PATIENT
  Age: 48 Year
  Sex: Female
  Weight: 53.515 kg

DRUGS (21)
  1. TRASYLOL [Suspect]
     Indication: CORONARY ARTERY BYPASS
     Dosage: 1 ML, UNK
     Route: 042
     Dates: start: 20030818, end: 20030818
  2. FUROSEMIDE [Concomitant]
     Dosage: 80 MG, QD
     Route: 048
  3. ISOFLURANE [Concomitant]
     Dosage: INHALANT
  4. PROPOFOL [Concomitant]
     Dosage: UNK
     Route: 042
     Dates: start: 20030818
  5. CALCIUM CHLORIDE [Concomitant]
     Dosage: 1 G, UNK
     Route: 042
     Dates: start: 20030818
  6. GLYBURIDE [Concomitant]
     Dosage: 10 MG, UNK
     Route: 048
  7. PHENYLEPHRINE HCL [Concomitant]
     Dosage: UNK
     Route: 042
     Dates: start: 20030818
  8. FENTANYL [Concomitant]
     Dosage: UNK
     Route: 042
     Dates: start: 20030818
  9. MANNITOL [Concomitant]
     Dosage: 500 MG, UNK
     Route: 042
     Dates: start: 20030818
  10. TOPROL-XL [Concomitant]
     Dosage: 100 MG, QD
     Route: 048
  11. LOPRESSOR [Concomitant]
     Dosage: UNK
     Route: 048
  12. AVAPRO [Concomitant]
     Dosage: 150 MG, UNK
     Route: 048
  13. NOREPINEPHRINE BITARTRATE [Concomitant]
     Dosage: UNK
     Route: 042
     Dates: start: 20030818
  14. SODIUM BICARBONATE [Concomitant]
     Dosage: 30 MG, UNK
     Route: 042
     Dates: start: 20030818
  15. ASPIRIN [Concomitant]
     Dosage: 81 MG, UNK
     Route: 048
  16. HEPARIN [Concomitant]
     Dosage: 1000 U, UNK
     Route: 042
     Dates: start: 20030818
  17. LISINOPRIL [Concomitant]
     Dosage: 20 MG, QD
     Route: 048
  18. PANCURON [Concomitant]
     Dosage: 10 MG, UNK
     Route: 042
     Dates: start: 20030818
  19. INSULIN [Concomitant]
     Dosage: UNK
     Route: 042
     Dates: start: 20030818
  20. ZINACEF [Concomitant]
     Dosage: UNK
     Route: 042
     Dates: start: 20030818
  21. MILRINONE [Concomitant]
     Dosage: 5 MG, UNK
     Route: 042

REACTIONS (9)
  - INJURY [None]
  - DEPRESSION [None]
  - ANXIETY [None]
  - ANHEDONIA [None]
  - RENAL FAILURE [None]
  - UNEVALUABLE EVENT [None]
  - RENAL FAILURE CHRONIC [None]
  - FEAR [None]
  - PAIN [None]
